FAERS Safety Report 23667781 (Version 1)
Quarter: 2024Q1

REPORT INFORMATION
  Report Type: Spontaneous
  Country: JP (occurrence: JP)
  Receive Date: 20240325
  Receipt Date: 20240325
  Transmission Date: 20240410
  Serious: Yes (Death, Hospitalization)
  Sender: FDA-Public Use
  Company Number: JP-MYLANLABS-2024M1025658

PATIENT
  Age: 49 Year
  Sex: Male
  Weight: 56 kg

DRUGS (12)
  1. CARBOPLATIN [Suspect]
     Active Substance: CARBOPLATIN
     Indication: Lung adenocarcinoma
     Dosage: 880 MG/BODY
     Route: 065
     Dates: start: 202103
  2. CARBOPLATIN [Suspect]
     Active Substance: CARBOPLATIN
     Dosage: 739 MG/BODY
     Route: 065
  3. PEMETREXED [Suspect]
     Active Substance: PEMETREXED
     Indication: Lung adenocarcinoma
     Dosage: 858 MG/BODY
     Route: 065
     Dates: start: 202103
  4. PEMETREXED [Suspect]
     Active Substance: PEMETREXED
     Dosage: 813 MG/BODY
     Route: 065
  5. NIVOLUMAB [Suspect]
     Active Substance: NIVOLUMAB
     Indication: Lung adenocarcinoma
     Dosage: 360 MG/BODY GIVEN 3 WEEKS APART
     Route: 065
     Dates: start: 202103
  6. NIVOLUMAB [Suspect]
     Active Substance: NIVOLUMAB
     Dosage: UNK
     Route: 065
     Dates: start: 202105
  7. IPILIMUMAB [Suspect]
     Active Substance: IPILIMUMAB
     Indication: Lung adenocarcinoma
     Dosage: 57.5 MG/BODY; ADMINISTERED 6 WEEKS APART.
     Route: 065
     Dates: start: 202103
  8. IPILIMUMAB [Suspect]
     Active Substance: IPILIMUMAB
     Dosage: 60 MG/BODY; ADMINISTERED 6 WEEKS APART.
     Route: 065
  9. IPILIMUMAB [Suspect]
     Active Substance: IPILIMUMAB
     Dosage: UNK
     Route: 065
     Dates: start: 202105
  10. BROTIZOLAM [Concomitant]
     Active Substance: BROTIZOLAM
     Indication: Product used for unknown indication
     Dosage: 0.25 MILLIGRAM, QD
     Route: 065
  11. NAPROXEN [Concomitant]
     Active Substance: NAPROXEN
     Indication: Product used for unknown indication
     Dosage: 100 MILLIGRAM, QD
     Route: 065
  12. ESOMEPRAZOLE MAGNESIUM [Concomitant]
     Active Substance: ESOMEPRAZOLE MAGNESIUM
     Indication: Product used for unknown indication
     Dosage: 10 MILLIGRAM, QD
     Route: 065

REACTIONS (1)
  - Drug ineffective [Fatal]
